FAERS Safety Report 23657148 (Version 1)
Quarter: 2024Q1

REPORT INFORMATION
  Report Type: Report from Study
  Country: GB (occurrence: GB)
  Receive Date: 20240321
  Receipt Date: 20240321
  Transmission Date: 20240409
  Serious: Yes (Other)
  Sender: FDA-Public Use
  Company Number: GB-002147023-NVSC2021GB170994

PATIENT
  Sex: Female

DRUGS (1)
  1. COSENTYX [Suspect]
     Active Substance: SECUKINUMAB
     Indication: Psoriatic arthropathy
     Dosage: 300 MG, UNKNOWN
     Route: 065
     Dates: start: 20210625

REACTIONS (20)
  - Rectal haemorrhage [Recovered/Resolved with Sequelae]
  - Psoriatic arthropathy [Recovered/Resolved with Sequelae]
  - Malaise [Recovered/Resolved with Sequelae]
  - Arthralgia [Recovered/Resolved with Sequelae]
  - Bone pain [Recovered/Resolved with Sequelae]
  - Accident [Recovered/Resolved with Sequelae]
  - Throat irritation [Recovered/Resolved with Sequelae]
  - Nausea [Recovered/Resolved with Sequelae]
  - Eyelid skin dryness [Recovered/Resolved with Sequelae]
  - Dry eye [Recovered/Resolved with Sequelae]
  - Eye pain [Recovered/Resolved with Sequelae]
  - Mouth ulceration [Recovered/Resolved with Sequelae]
  - Oral discomfort [Recovered/Resolved with Sequelae]
  - Vulvovaginal erythema [Recovered/Resolved with Sequelae]
  - Vulvovaginal dryness [Recovered/Resolved with Sequelae]
  - Dysuria [Unknown]
  - Diarrhoea [Recovered/Resolved with Sequelae]
  - Depressed mood [Unknown]
  - Vaginal discharge [Unknown]
  - Urinary tract infection [Unknown]
